FAERS Safety Report 5268024-2 (Version None)
Quarter: 2007Q1

REPORT INFORMATION
  Report Type: 
  Country: None (occurrence: None)
  Receive Date: 20070319
  Receipt Date: 20070312
  Transmission Date: 20070707
  Serious: Yes (Death, Hospitalization, Other)
  Sender: FDA-Public Use
  Company Number: PHEH2005US10682

PATIENT
  Age: 57 Year
  Sex: Female
  Weight: 68.027 kg

DRUGS (30)
  1. ADRIAMYCIN PFS [Concomitant]
     Indication: BREAST CANCER
     Dosage: 100 MG, UNK
     Dates: start: 19970101
  2. CYTOXAN [Concomitant]
     Dosage: 1000 MG, UNK
     Dates: start: 19970101
  3. CYCLOPHOSPHAMIDE + 5-FU + METHOTREXATE [Concomitant]
  4. TAXOL [Concomitant]
  5. RADIATION [Concomitant]
     Dates: start: 19980709, end: 19980929
  6. RADIATION [Concomitant]
     Dates: start: 20050113, end: 20050222
  7. RADIATION [Concomitant]
     Dates: start: 20050411, end: 20050517
  8. RADIATION [Concomitant]
     Dates: start: 20050725, end: 20050826
  9. TAMOXIFEN CITRATE [Concomitant]
     Indication: BREAST CANCER
     Dosage: 10 MG, BID
     Dates: end: 20030601
  10. ATENOLOL [Concomitant]
  11. DIOVAN [Concomitant]
  12. ZOMETA [Suspect]
     Indication: METASTASES TO BONE
     Dosage: 4 MG, ONCE/SINGLE
     Route: 042
     Dates: start: 20011228
  13. ZOMETA [Suspect]
     Dosage: 4MG Q4WKS
     Route: 042
     Dates: start: 20020102, end: 20041101
  14. LASIX [Concomitant]
     Dosage: 20 MG, QD
     Dates: start: 20030717
  15. AREDIA [Suspect]
     Indication: METASTASES TO BONE
     Dosage: 90MG Q4WKS
     Route: 042
     Dates: start: 20001215, end: 20011101
  16. AREDIA [Suspect]
     Dates: start: 20050701
  17. AREDIA [Suspect]
     Dosage: 60 MG, ONCE/SINGLE
     Route: 042
     Dates: start: 20050802
  18. AREDIA [Suspect]
     Dosage: 90 MG, ONCE/SINGLE
     Route: 042
     Dates: start: 20051110
  19. LETROZOLE [Concomitant]
     Indication: BREAST CANCER
     Dates: start: 20001201, end: 20010301
  20. XELODA [Concomitant]
     Indication: BREAST CANCER
     Dosage: 1500MG QAM/ 1000MG QPM
     Dates: start: 20010402, end: 20010801
  21. NAVELBINE [Concomitant]
     Indication: BREAST CANCER
     Dosage: 35 MG, UNK
     Route: 042
     Dates: start: 20010413, end: 20010801
  22. FASLODEX [Concomitant]
     Indication: BREAST CANCER
     Dosage: 250 MG, UNK
     Route: 030
     Dates: start: 20021115, end: 20030101
  23. FEMARA [Concomitant]
     Indication: BREAST CANCER
     Dosage: 2.5 MG, QD
     Dates: start: 20001101
  24. AROMASIN [Concomitant]
     Indication: BREAST CANCER
     Dosage: 25 MG, QD
     Route: 048
     Dates: start: 20010910, end: 20021115
  25. TAXOTERE [Concomitant]
     Indication: BREAST CANCER
     Dosage: 35 MG, UNK
     Dates: start: 20030228
  26. TAXOTERE [Concomitant]
     Dosage: 30 MG, UNK
     Dates: start: 20030717, end: 20030814
  27. CISPLATIN [Concomitant]
     Indication: BREAST CANCER
     Dosage: 42 MG, UNK
     Route: 042
     Dates: start: 20040302
  28. DEXAMETHASONE [Concomitant]
     Dosage: 20 MG, UNK
     Dates: start: 20040302
  29. GEMCITABINE [Concomitant]
     Indication: BREAST CANCER
     Dosage: 1008 MG, UNK
     Route: 042
     Dates: start: 20040302
  30. ONDANSETRON [Concomitant]
     Dosage: 20 MG Q2WKS
     Route: 042
     Dates: start: 20040302

REACTIONS (49)
  - ABDOMINAL PAIN [None]
  - ANAEMIA [None]
  - ANORECTAL DISORDER [None]
  - ARTERIOSCLEROSIS [None]
  - ARTHRALGIA [None]
  - ASCITES [None]
  - BLOOD COUNT ABNORMAL [None]
  - BONE DEBRIDEMENT [None]
  - BONE SCAN ABNORMAL [None]
  - BREAST CANCER [None]
  - BREATH ODOUR [None]
  - COMPUTERISED TOMOGRAM ABNORMAL [None]
  - DEATH [None]
  - DENTAL EXAMINATION ABNORMAL [None]
  - DENTAL TREATMENT [None]
  - DIVERTICULUM [None]
  - DYSPNOEA [None]
  - ERYTHEMA [None]
  - GLOSSODYNIA [None]
  - HEPATIC STEATOSIS [None]
  - HYPERCALCAEMIA [None]
  - HYPERTENSION [None]
  - HYPOAESTHESIA [None]
  - HYPONATRAEMIA [None]
  - INFLAMMATION [None]
  - MALIGNANT NEOPLASM PROGRESSION [None]
  - MASTECTOMY [None]
  - METASTASES TO BONE [None]
  - METASTASES TO SOFT TISSUE [None]
  - MUSCLE SPASMS [None]
  - MYALGIA [None]
  - NAIL DISCOLOURATION [None]
  - NAIL DISORDER [None]
  - OEDEMA PERIPHERAL [None]
  - OMENTUM NEOPLASM [None]
  - ONYCHOMYCOSIS [None]
  - OPEN WOUND [None]
  - ORGAN FAILURE [None]
  - OSTEONECROSIS [None]
  - PAIN [None]
  - PARACENTESIS [None]
  - PLEURAL EFFUSION [None]
  - RENAL FAILURE ACUTE [None]
  - TONGUE DISCOLOURATION [None]
  - TOOTH DISORDER [None]
  - TOOTH EXTRACTION [None]
  - TUMOUR MARKER INCREASED [None]
  - WOUND DRAINAGE [None]
  - WOUND TREATMENT [None]
